FAERS Safety Report 5051998-2 (Version None)
Quarter: 2006Q3

REPORT INFORMATION
  Report Type: 
  Country: None (occurrence: None)
  Receive Date: 20060711
  Receipt Date: 20060623
  Transmission Date: 20061208
  Serious: Yes (Other)
  Sender: FDA-Public Use
  Company Number: 13422951

PATIENT
  Sex: Female

DRUGS (1)
  1. EMSAM [Suspect]
     Dates: start: 20060501

REACTIONS (4)
  - HEADACHE [None]
  - HYPERTENSION [None]
  - HYPERTENSIVE CRISIS [None]
  - TREMOR [None]
